FAERS Safety Report 8209514-X (Version None)
Quarter: 2012Q1

REPORT INFORMATION
  Report Type: 
  Country: None (occurrence: None)
  Receive Date: 20120314
  Receipt Date: 20120305
  Transmission Date: 20120608
  Serious: Yes (Hospitalization)
  Sender: FDA-Public Use
  Company Number: FI-ELI_LILLY_AND_COMPANY-FI201201005852

PATIENT
  Sex: Male

DRUGS (2)
  1. LANTUS [Concomitant]
     Indication: DIABETES MELLITUS
  2. HUMALOG [Suspect]
     Dosage: UNK UNK, UNKNOWN

REACTIONS (4)
  - DRUG INEFFECTIVE [None]
  - BLOOD GLUCOSE INCREASED [None]
  - GASTROENTERITIS VIRAL [None]
  - DIABETIC KETOACIDOSIS [None]
